FAERS Safety Report 5072792-2 (Version None)
Quarter: 2006Q3

REPORT INFORMATION
  Report Type: 
  Country: None (occurrence: None)
  Receive Date: 20060801
  Receipt Date: 20060630
  Transmission Date: 20061208
  Serious: Yes (Other)
  Sender: FDA-Public Use
  Company Number: 6023929F

PATIENT
  Age: 59 Year
  Sex: Male

DRUGS (10)
  1. NIASPAN [Suspect]
     Indication: HYPERTRIGLYCERIDAEMIA
     Dosage: 500 MG QD PO
     Route: 048
     Dates: start: 20051226, end: 20051226
  2. CYCLOSPORINE [Concomitant]
  3. MYCOPHENOLATE MOFETIL [Concomitant]
  4. ALLOPURINOL [Concomitant]
  5. INSULIN [Concomitant]
  6. FLUVASTATIN [Concomitant]
  7. FUROSEMIDE [Concomitant]
  8. ENALAPRIL MALEATE [Concomitant]
  9. ZOLPIDEM [Concomitant]
  10. CLOPIDOGREL [Concomitant]

REACTIONS (8)
  - DIARRHOEA [None]
  - DYSPNOEA [None]
  - EYE DISORDER [None]
  - FALL [None]
  - FLUSHING [None]
  - FOAMING AT MOUTH [None]
  - HEAD INJURY [None]
  - SYNCOPE [None]
